FAERS Safety Report 10827455 (Version 1)
Quarter: 2015Q1

REPORT INFORMATION
  Report Type: Report from Study
  Country: US (occurrence: US)
  Receive Date: 20150219
  Receipt Date: 20150219
  Transmission Date: 20150721
  Serious: No
  Sender: FDA-Public Use
  Company Number: US-ABBVIE-14K-163-1325265-00

PATIENT
  Age: 40 Year
  Sex: Male

DRUGS (2)
  1. HUMIRA [Suspect]
     Active Substance: ADALIMUMAB
     Route: 058
     Dates: start: 2014
  2. HUMIRA [Suspect]
     Active Substance: ADALIMUMAB
     Indication: PSORIASIS
     Route: 058
     Dates: start: 20140918, end: 201411

REACTIONS (2)
  - Pharyngitis streptococcal [Recovered/Resolved]
  - Skin bacterial infection [Recovering/Resolving]

NARRATIVE: CASE EVENT DATE: 201411
